FAERS Safety Report 15280340 (Version 1)
Quarter: 2018Q3

REPORT INFORMATION
  Report Type: Spontaneous
  Country: CA (occurrence: CA)
  Receive Date: 20180815
  Receipt Date: 20180815
  Transmission Date: 20181010
  Serious: Yes (Death, Hospitalization, Other)
  Sender: FDA-Public Use
  Company Number: CA-PFIZER INC-2018326567

PATIENT
  Age: 61 Year
  Sex: Female

DRUGS (11)
  1. HYDROCORTISONE. [Suspect]
     Active Substance: HYDROCORTISONE
     Indication: PYODERMA GANGRENOSUM
     Dosage: 50 MG, 4X/DAY
     Route: 042
  2. CARBOXYMETHYLCELLULOSE [Concomitant]
     Active Substance: CARBOXYMETHYLCELLULOSE
     Dosage: UNK
  3. AZATHIOPRINE. [Suspect]
     Active Substance: AZATHIOPRINE
     Indication: MYASTHENIA GRAVIS
     Dosage: 150 MG, 2X/DAY
     Route: 048
  4. MINIMS PREDNISOLONE SODIUM PHOSPHATE [Suspect]
     Active Substance: PREDNISOLONE SODIUM PHOSPHATE
     Indication: PYODERMA GANGRENOSUM
     Dosage: UNK,DROPS OPHTHALMIC
     Route: 048
  5. PREDNISONE. [Suspect]
     Active Substance: PREDNISONE
     Indication: PYODERMA GANGRENOSUM
     Dosage: UNK
     Route: 048
  6. FLUTICASONE. [Suspect]
     Active Substance: FLUTICASONE
     Indication: PYODERMA GANGRENOSUM
     Dosage: UNK
     Route: 061
  7. HUMAN IMMUNOGLOBULIN [Suspect]
     Active Substance: HUMAN IMMUNOGLOBULIN G
     Indication: PYODERMA GANGRENOSUM
     Dosage: UNK
     Route: 042
  8. ARESTIN [Suspect]
     Active Substance: MINOCYCLINE HYDROCHLORIDE
     Indication: PYODERMA GANGRENOSUM
     Dosage: 100 MG, 2X/DAY
     Route: 048
  9. CICLOSPORIN [Suspect]
     Active Substance: CYCLOSPORINE
     Indication: PYODERMA GANGRENOSUM
     Dosage: UNK
     Route: 042
  10. AZATHIOPRINE. [Suspect]
     Active Substance: AZATHIOPRINE
     Indication: PYODERMA GANGRENOSUM
     Dosage: 100 MG, 2X/DAY
     Route: 048
  11. COLCHICINE. [Suspect]
     Active Substance: COLCHICINE
     Indication: PYODERMA GANGRENOSUM
     Dosage: 0.6 MG, 2X/DAY
     Route: 048

REACTIONS (9)
  - Urinary tract infection [Fatal]
  - Pancytopenia [Fatal]
  - Disseminated intravascular coagulation [Fatal]
  - Pulmonary mass [Fatal]
  - Hepatic failure [Fatal]
  - Treatment failure [Fatal]
  - Enterococcal sepsis [Fatal]
  - Septic shock [Fatal]
  - Off label use [Unknown]
